FAERS Safety Report 24644784 (Version 5)
Quarter: 2025Q2

REPORT INFORMATION
  Report Type: Spontaneous
  Country: PR (occurrence: US)
  Receive Date: 20241121
  Receipt Date: 20250511
  Transmission Date: 20250717
  Serious: Yes (Other)
  Sender: SANOFI AVENTIS
  Company Number: PR-SA-2024SA338328

PATIENT
  Age: 75 Year
  Sex: Male

DRUGS (1)
  1. DUPIXENT [Suspect]
     Active Substance: DUPILUMAB
     Indication: Neurodermatitis
     Dosage: 300 MG, QOW
     Route: 058
     Dates: start: 20230508

REACTIONS (15)
  - Cardiac pacemaker insertion [Recovering/Resolving]
  - Constipation [Not Recovered/Not Resolved]
  - Hyperkeratosis [Recovering/Resolving]
  - Viral infection [Recovering/Resolving]
  - Balance disorder [Recovering/Resolving]
  - Acne [Recovering/Resolving]
  - Rash macular [Recovering/Resolving]
  - Blood pressure increased [Recovering/Resolving]
  - Spinal pain [Recovering/Resolving]
  - Rhinorrhoea [Recovering/Resolving]
  - Sneezing [Recovering/Resolving]
  - Myalgia [Recovering/Resolving]
  - Dizziness [Recovering/Resolving]
  - Arthralgia [Recovering/Resolving]
  - Injection site pain [Not Recovered/Not Resolved]

NARRATIVE: CASE EVENT DATE: 20230501
